FAERS Safety Report 10369406 (Version 1)
Quarter: 2014Q1

REPORT INFORMATION
  Report Type: Spontaneous
  Country: US (occurrence: None)
  Receive Date: 20140306
  Receipt Date: 20140306
  Transmission Date: 20141002
  Serious: Yes (Hospitalization, Other)
  Sender: FDA-Public Use
  Company Number: 163-21880-13074856

PATIENT
  Age: 68 Year
  Sex: Male
  Weight: 85.1 kg

DRUGS (28)
  1. REVLIMID [Suspect]
     Indication: PLASMA CELL MYELOMA
     Route: 048
     Dates: start: 201011
  2. PLERIXAFOR [Concomitant]
  3. NORMAL SALINE (SODIUM CHLORIDE) [Concomitant]
  4. OMEPRAZOLE [Concomitant]
  5. LOPRESSOR (METOPROLOL TARTRATE) [Concomitant]
  6. ALLOPURINOL [Concomitant]
  7. LOSARTAN [Concomitant]
  8. VITAMIN D (ERGOCALCIFEROL) [Concomitant]
  9. CALCIUM [Concomitant]
  10. FISH OIL [Concomitant]
  11. RED BLOOD CELLS [Concomitant]
  12. PLATELETS [Concomitant]
  13. DEXAMETHASONE [Concomitant]
  14. DULOXETINE [Concomitant]
  15. FLUCONAZOLE [Concomitant]
  16. ACYCLOVIR (ACICLOVIR) [Concomitant]
  17. PANTOPRAZOLE [Concomitant]
  18. ATORVASTATIN [Concomitant]
  19. FUROSEMIDE [Concomitant]
  20. GUAIFENESIN [Concomitant]
  21. LEVOFLOXACIN [Concomitant]
  22. MAGNESIUM SULFATE [Concomitant]
  23. OXYCODONE [Concomitant]
  24. AMBIEN (ZOLPIDEM TARTRATE) [Concomitant]
  25. MULTIVITAMIN (MULTIVITAMINS) [Concomitant]
  26. CYMBALTA [Concomitant]
  27. IMODIUM (LOPERAMIDE DISODIUM) [Concomitant]
  28. PAMIDRONATE (PAMIDRONATE DISODIUM) [Concomitant]

REACTIONS (6)
  - Squamous cell carcinoma of skin [None]
  - Pancytopenia [None]
  - Pneumonia [None]
  - Neutropenia [None]
  - Thrombocytopenia [None]
  - Ear infection [None]
